FAERS Safety Report 18203383 (Version 1)
Quarter: 2020Q3

REPORT INFORMATION
  Report Type: Spontaneous
  Country: DE (occurrence: DE)
  Receive Date: 20200827
  Receipt Date: 20200827
  Transmission Date: 20201103
  Serious: Yes (Other)
  Sender: FDA-Public Use
  Company Number: DE-MYLANLABS-2020M1073171

PATIENT
  Age: 1 Day
  Sex: Male
  Weight: 3.93 kg

DRUGS (7)
  1. PARACETAMOL [Concomitant]
     Active Substance: ACETAMINOPHEN
     Indication: BACK PAIN
     Dosage: 500 [MG/D (BEI BEDARF) ]/TAKEN ON APPROXIMATELY 9 DAYS DURING THE ENTIRE PREGNANCY
     Route: 064
     Dates: start: 20190518, end: 20200221
  2. BUPROPION. [Concomitant]
     Active Substance: BUPROPION
     Indication: DEPRESSION
     Dosage: UNK, THERAPY WAS PROBABLY ONGOING.
     Route: 065
     Dates: start: 20190518, end: 20190805
  3. L?THYROXIN                         /00068002/ [Concomitant]
     Active Substance: LEVOTHYROXINE SODIUM
     Indication: HYPOTHYROIDISM
     Dosage: 50 [?G/D ]
     Route: 064
  4. MIRTAZAPINE. [Suspect]
     Active Substance: MIRTAZAPINE
     Indication: SLEEP DISORDER
     Dosage: 1.87[MG/D ]/A15 MG TABLET WAS DIVIDED SEVERAL TIMES BY THE PATIENT
     Route: 064
  5. SYMBICORT [Concomitant]
     Active Substance: BUDESONIDE\FORMOTEROL FUMARATE DIHYDRATE
     Indication: ASTHMA
     Dosage: 320 [?G/D (BIS160) ]/9 [?G/D (BIS 4.5)]
     Route: 064
     Dates: start: 20190518, end: 20200221
  6. ESCITALOPRAM [Suspect]
     Active Substance: ESCITALOPRAM OXALATE
     Indication: ANXIETY DISORDER
     Dosage: 20 [MG/D (BIS 10)]
     Route: 064
     Dates: start: 20190518, end: 20200221
  7. INFLUVAC TETRA [Concomitant]
     Active Substance: INFLUENZA VIRUS VACCINE QUADRIVALENT TYPE A+B
     Indication: IMMUNISATION
     Dosage: UNK
     Route: 064
     Dates: start: 20191007, end: 20191007

REACTIONS (7)
  - Atrial septal defect [Unknown]
  - Foetal exposure during pregnancy [Recovered/Resolved]
  - Bradycardia neonatal [Recovered/Resolved]
  - Hypotonia [Recovered/Resolved]
  - Respiratory disorder neonatal [Recovered/Resolved]
  - Infantile apnoea [Recovered/Resolved]
  - Drug withdrawal syndrome neonatal [Recovered/Resolved]

NARRATIVE: CASE EVENT DATE: 20200221
